FAERS Safety Report 10866120 (Version 1)
Quarter: 2015Q1

REPORT INFORMATION
  Report Type: Spontaneous
  Country: US (occurrence: None)
  Receive Date: 20150219
  Receipt Date: 20150219
  Transmission Date: 20150721
  Serious: Yes (Hospitalization)
  Sender: FDA-Public Use
  Company Number: 2015HINLIT0052

PATIENT
  Age: 35 Year
  Sex: Female

DRUGS (1)
  1. LITHIUM [Suspect]
     Active Substance: LITHIUM CARBONATE
     Indication: PRODUCT USED FOR UNKNOWN INDICATION

REACTIONS (10)
  - Choreoathetosis [None]
  - Haemodialysis [None]
  - Cerebellar syndrome [None]
  - Ataxia [None]
  - Toxicity to various agents [None]
  - Body temperature increased [None]
  - Cognitive disorder [None]
  - Upper respiratory tract infection [None]
  - Dysarthria [None]
  - Nystagmus [None]
